FAERS Safety Report 12775639 (Version 1)
Quarter: 2016Q3

REPORT INFORMATION
  Report Type: Spontaneous
  Country: US (occurrence: US)
  Receive Date: 20160923
  Receipt Date: 20160923
  Transmission Date: 20161109
  Serious: No
  Sender: FDA-Public Use
  Company Number: US-BAUSCH-BL-2016-013760

PATIENT
  Age: 62 Year
  Sex: Female
  Weight: 50.39 kg

DRUGS (3)
  1. PROPOFOL. [Concomitant]
     Active Substance: PROPOFOL
     Indication: ANAESTHESIA
     Route: 042
     Dates: start: 20160518, end: 20160518
  2. MOVIPREP [Suspect]
     Active Substance: ASCORBIC ACID\POLYETHYLENE GLYCOL 3350\POTASSIUM CHLORIDE\SODIUM ASCORBATE\SODIUM CHLORIDE\SODIUM SULFATE
     Indication: COLONOSCOPY
     Dosage: SPLIT DOSE REGIMEN: 1 DOSE THE EVENING PRIOR TO THE PROCEDURE, AND 1 DOSE THE MORNING OF THE PROCEDU
     Route: 048
     Dates: start: 20160517, end: 20160517
  3. MOVIPREP [Suspect]
     Active Substance: ASCORBIC ACID\POLYETHYLENE GLYCOL 3350\POTASSIUM CHLORIDE\SODIUM ASCORBATE\SODIUM CHLORIDE\SODIUM SULFATE
     Dosage: SPLIT DOSE REGIMEN: 1 DOSE THE EVENING PRIOR TO THE PROCEDURE, AND 1 DOSE THE MORNING OF THE PROCEDU
     Route: 048
     Dates: start: 20160518, end: 20160518

REACTIONS (1)
  - Rash [Recovered/Resolved]

NARRATIVE: CASE EVENT DATE: 20160519
